FAERS Safety Report 4692951-8 (Version None)
Quarter: 2005Q2

REPORT INFORMATION
  Report Type: 
  Country: None (occurrence: None)
  Receive Date: 20050617
  Receipt Date: 20050523
  Transmission Date: 20051028
  Serious: Yes (Other)
  Sender: FDA-Public Use
  Company Number: US-ABBOTT-05P-163-0301566-00

PATIENT
  Sex: Female

DRUGS (2)
  1. SEVOFLURANE [Suspect]
     Indication: ANAESTHESIA
     Dosage: NOT REPORTED
     Route: 055
     Dates: start: 20050101, end: 20050101
  2. SEVOFLURANE [Suspect]

REACTIONS (1)
  - UNWANTED AWARENESS DURING ANAESTHESIA [None]
